FAERS Safety Report 5015425-3 (Version None)
Quarter: 2006Q2

REPORT INFORMATION
  Report Type: 
  Country: None (occurrence: None)
  Receive Date: 20060601
  Receipt Date: 20060522
  Transmission Date: 20061013
  Serious: Yes (Other)
  Sender: FDA-Public Use
  Company Number: 2006UW09927

PATIENT
  Age: 52 Year
  Sex: Female
  Weight: 92.1 kg

DRUGS (14)
  1. SEROQUEL [Suspect]
     Indication: BIPOLAR DISORDER
     Route: 048
     Dates: start: 20010101
  2. NARDIL [Concomitant]
  3. LITHOBID [Concomitant]
  4. LOPRESSOR [Concomitant]
  5. KLONOPIN [Concomitant]
  6. VISTARIL [Concomitant]
  7. AMBIEN [Concomitant]
  8. SYNTHROID [Concomitant]
  9. IRON [Concomitant]
  10. POTASSIUM [Concomitant]
  11. INHALER [Concomitant]
  12. VICODIN [Concomitant]
  13. LORTAB [Concomitant]
  14. LASIX [Concomitant]

REACTIONS (4)
  - DRY MOUTH [None]
  - FATIGUE [None]
  - FEELING OF RELAXATION [None]
  - VISION BLURRED [None]
